FAERS Safety Report 5649337-9 (Version None)
Quarter: 2008Q1

REPORT INFORMATION
  Report Type: 
  Country: None (occurrence: None)
  Receive Date: 20080304
  Receipt Date: 20080108
  Transmission Date: 20080703
  Serious: No
  Sender: FDA-Public Use
  Company Number: US-BAYER-200810883NA

PATIENT
  Age: 43 Year
  Sex: Female

DRUGS (7)
  1. MAGNEVIST [Suspect]
     Indication: NUCLEAR MAGNETIC RESONANCE IMAGING
     Dosage: TOTAL DAILY DOSE: 13 ML  UNIT DOSE: 13 ML
     Route: 042
     Dates: start: 20071220, end: 20071220
  2. CALCIUM [Concomitant]
  3. PROBROTZ [Concomitant]
  4. LOTRIMIN [Concomitant]
  5. MAGNESIUM [Concomitant]
  6. T3 COMPOUND [Concomitant]
  7. LEVOTHROID [Concomitant]

REACTIONS (3)
  - NASAL CONGESTION [None]
  - PRURITUS [None]
  - URTICARIA [None]
